FAERS Safety Report 22400684 (Version 1)
Quarter: 2023Q2

REPORT INFORMATION
  Report Type: Spontaneous
  Country: US (occurrence: None)
  Receive Date: 20230601
  Receipt Date: 20230601
  Transmission Date: 20230722
  Serious: No
  Sender: FDA-Public Use
  Company Number: None

PATIENT
  Sex: Female

DRUGS (2)
  1. OPSUMIT [Suspect]
     Active Substance: MACITENTAN
     Indication: Pulmonary arterial hypertension
     Dosage: 10MG DAILY ORAL
     Route: 048
  2. UPTRAVI [Suspect]
     Active Substance: SELEXIPAG

REACTIONS (6)
  - Chest pain [None]
  - Fatigue [None]
  - Dizziness [None]
  - Peripheral swelling [None]
  - Joint swelling [None]
  - Peripheral swelling [None]
